FAERS Safety Report 7827348-2 (Version None)
Quarter: 2011Q4

REPORT INFORMATION
  Report Type: 
  Country: None (occurrence: None)
  Receive Date: 20111020
  Receipt Date: 20111017
  Transmission Date: 20120403
  Serious: Yes (Other)
  Sender: FDA-Public Use
  Company Number: JP-PFIZER INC-2011249201

PATIENT
  Age: 77 Year
  Sex: Male

DRUGS (10)
  1. LYRICA [Suspect]
     Dosage: 75 MG/DAY
     Route: 048
     Dates: start: 20110817, end: 20110915
  2. METHYCOBAL [Concomitant]
     Dosage: UNK
  3. LYRICA [Suspect]
     Dosage: 275 MG/DAY
     Route: 048
     Dates: start: 20110916, end: 20111017
  4. NORTRIPTYLINE HCL [Concomitant]
     Dosage: UNK
  5. OLMESARTAN MEDOXOMIL [Concomitant]
     Dosage: UNK
  6. LENDORMIN [Concomitant]
     Dosage: UNK
  7. PARACETAMOL AND TRAMADOL [Concomitant]
     Dosage: UNK
  8. VOGLIBOSE [Concomitant]
     Dosage: UNK
  9. NEUROTROPIN [Concomitant]
     Dosage: UNK
     Route: 048
  10. ADALAT [Concomitant]
     Dosage: UNK

REACTIONS (3)
  - FACE OEDEMA [None]
  - PULMONARY OEDEMA [None]
  - WEIGHT INCREASED [None]
